FAERS Safety Report 15814034 (Version 1)
Quarter: 2019Q1

REPORT INFORMATION
  Report Type: Spontaneous
  Country: US (occurrence: US)
  Receive Date: 20190111
  Receipt Date: 20190111
  Transmission Date: 20190417
  Serious: Yes (Other)
  Sender: FDA-Public Use
  Company Number: None

PATIENT
  Sex: Male

DRUGS (1)
  1. INTRON A [Suspect]
     Active Substance: INTERFERON ALFA-2B
     Dosage: ?          OTHER FREQUENCY:MON WED FRIDAY;?
     Route: 058

REACTIONS (4)
  - Disturbance in attention [None]
  - Headache [None]
  - Fatigue [None]
  - Blood pressure increased [None]
